FAERS Safety Report 8004914-5 (Version None)
Quarter: 2011Q4

REPORT INFORMATION
  Report Type: 
  Country: None (occurrence: None)
  Receive Date: 20111219
  Receipt Date: 20111213
  Transmission Date: 20120403
  Serious: Yes (Other)
  Sender: FDA-Public Use
  Company Number: 2011SP058257

PATIENT
  Age: 41 Year
  Sex: Female

DRUGS (7)
  1. DEPAS (ETIZOLAM) [Suspect]
     Dosage: 9 MG;QD;PO
     Route: 048
  2. PAXIL [Suspect]
     Dosage: 40 MG;QD;PO
     Route: 048
  3. MIRTAZAPINE [Suspect]
     Indication: INSOMNIA
     Dosage: 30 MG;QD;PO
     Route: 048
  4. MIRTAZAPINE [Suspect]
     Indication: DEPRESSION
     Dosage: 30 MG;QD;PO
     Route: 048
  5. FLUNITRAZEPAM (FLUNITRAZEPAM) [Suspect]
     Dosage: 2 MG;QD;PO
     Route: 048
  6. CLONAZEPAM [Concomitant]
  7. TOPIRAMATE [Concomitant]

REACTIONS (6)
  - NICOTINE DEPENDENCE [None]
  - DRUG INTERACTION [None]
  - FOOD CRAVING [None]
  - BURNING SENSATION [None]
  - ABNORMAL SLEEP-RELATED EVENT [None]
  - COMPULSIVE SHOPPING [None]
